FAERS Safety Report 15662401 (Version 1)
Quarter: 2018Q4

REPORT INFORMATION
  Report Type: Spontaneous
  Country: RO (occurrence: RO)
  Receive Date: 20181127
  Receipt Date: 20181127
  Transmission Date: 20190205
  Serious: Yes (Other)
  Sender: FDA-Public Use
  Company Number: PHHY2018RO166334

PATIENT
  Sex: Male

DRUGS (6)
  1. HUMIRA [Suspect]
     Active Substance: ADALIMUMAB
     Indication: PSORIATIC ARTHROPATHY
     Dosage: 1 OT, QD
     Route: 058
     Dates: start: 2018
  2. HUMIRA [Suspect]
     Active Substance: ADALIMUMAB
     Dosage: 1 OT, QD
     Route: 058
     Dates: end: 2018
  3. HUMIRA [Suspect]
     Active Substance: ADALIMUMAB
     Dosage: 40 MG, UNK
     Route: 058
     Dates: start: 20080515, end: 2017
  4. BRUFEN [Concomitant]
     Active Substance: IBUPROFEN
     Indication: HEADACHE
     Dosage: UNK
     Route: 048
  5. OXACILLIN [Suspect]
     Active Substance: OXACILLIN SODIUM
     Indication: NASAL SEPTUM DEVIATION
     Dosage: UNK
     Route: 065
  6. NUROFEN [Concomitant]
     Active Substance: IBUPROFEN
     Indication: HEADACHE
     Dosage: UNK
     Route: 048

REACTIONS (8)
  - Tooth abscess [Recovered/Resolved]
  - Loose tooth [Recovering/Resolving]
  - Oedema peripheral [Recovering/Resolving]
  - Anaphylactic shock [Recovered/Resolved]
  - Periodontitis [Recovering/Resolving]
  - Loose tooth [Recovered/Resolved]
  - Heat stroke [Recovered/Resolved]
  - Red blood cell sedimentation rate abnormal [Not Recovered/Not Resolved]

NARRATIVE: CASE EVENT DATE: 2008
